FAERS Safety Report 8663302 (Version 3)
Quarter: 2012Q4

REPORT INFORMATION
  Report Type: 
  Country: US (occurrence: US)
  Receive Date: 20120713
  Receipt Date: 20120926
  Transmission Date: 20130627
  Serious: Yes (Life-Threatening, Hospitalization, Other)
  Sender: FDA-Public Use
  Company Number: US-ASTELLAS-2012US006006

PATIENT
  Age: 54 Year
  Sex: Male
  Weight: 105 kg

DRUGS (23)
  1. PROGRAF [Suspect]
     Indication: RENAL TRANSPLANT
     Dosage: 6 mg, bid
     Route: 048
  2. PROGRAF [Suspect]
     Dosage: 3 mg, bid
     Route: 048
     Dates: start: 201207
  3. REGLAN                             /00041901/ [Suspect]
     Indication: PRODUCT USED FOR UNKNOWN INDICATION
     Dosage: UNK
     Route: 065
  4. MYFORTIC [Concomitant]
     Indication: PRODUCT USED FOR UNKNOWN INDICATION
     Dosage: 720 mg, bid
     Route: 048
  5. LONITEN [Concomitant]
     Indication: PRODUCT USED FOR UNKNOWN INDICATION
     Dosage: 5 mg, bid
     Route: 048
  6. BUMEX [Concomitant]
     Indication: PRODUCT USED FOR UNKNOWN INDICATION
     Dosage: 2 mg, UID/QD
     Route: 048
  7. ZOFRAN                             /00955301/ [Concomitant]
     Indication: PRODUCT USED FOR UNKNOWN INDICATION
     Dosage: 4 mg, tid
     Route: 048
  8. AMOXIL /00249601/ [Concomitant]
     Indication: PRODUCT USED FOR UNKNOWN INDICATION
     Dosage: 500 mg, UID/QD
     Route: 048
  9. CATAPRES                           /00171101/ [Concomitant]
     Indication: PRODUCT USED FOR UNKNOWN INDICATION
     Dosage: 0.2 mg, tid
     Route: 048
  10. CATAPRES                           /00171101/ [Concomitant]
     Dosage: 0.1 mg, tid
     Route: 048
  11. AMBIEN [Concomitant]
     Indication: PRODUCT USED FOR UNKNOWN INDICATION
     Dosage: 10 mg, prn
     Route: 048
  12. DILTIAZEM HYDROCHLORIDE [Concomitant]
     Indication: PRODUCT USED FOR UNKNOWN INDICATION
     Dosage: 300 mg, UID/QD
     Route: 048
  13. PRILOSEC                           /00661201/ [Concomitant]
     Indication: PRODUCT USED FOR UNKNOWN INDICATION
     Dosage: 20 mg, bid
     Route: 048
  14. APRESOLINE [Concomitant]
     Indication: PRODUCT USED FOR UNKNOWN INDICATION
     Dosage: 100 mg, tid
     Route: 048
  15. NEURONTIN [Concomitant]
     Indication: PRODUCT USED FOR UNKNOWN INDICATION
     Dosage: 300 mg, UID/QD
     Route: 048
  16. PENTAM [Concomitant]
     Indication: PRODUCT USED FOR UNKNOWN INDICATION
     Dosage: 300 mg, Unknown/D
     Route: 055
  17. PERCOCET                           /00446701/ [Interacting]
     Indication: PRODUCT USED FOR UNKNOWN INDICATION
     Dosage: 5-325 mg, prn
     Route: 048
  18. DELTASONE                          /00016001/ [Concomitant]
     Indication: PRODUCT USED FOR UNKNOWN INDICATION
     Dosage: 20 mg, UID/QD
     Route: 048
  19. ZOLOFT [Concomitant]
     Indication: PRODUCT USED FOR UNKNOWN INDICATION
     Dosage: 50 mg, UID/QD
     Route: 048
  20. RENVELA [Concomitant]
     Indication: PRODUCT USED FOR UNKNOWN INDICATION
     Dosage: 800 mg, tid
     Route: 048
  21. HUMALOG [Concomitant]
     Indication: PRODUCT USED FOR UNKNOWN INDICATION
     Dosage: 5 U, AC
     Route: 058
  22. MULTIVITAMIN                       /00097801/ [Concomitant]
     Indication: PRODUCT USED FOR UNKNOWN INDICATION
     Dosage: 1 DF, UID/QD
     Route: 048
  23. FOLVITE                            /00024201/ [Concomitant]
     Indication: PRODUCT USED FOR UNKNOWN INDICATION
     Dosage: 1 mg, UID/QD
     Route: 048

REACTIONS (25)
  - Drug ineffective [Unknown]
  - Renal disorder [Unknown]
  - Malignant hypertension [Unknown]
  - Renal failure chronic [Unknown]
  - Cardiac failure congestive [Unknown]
  - Kidney transplant rejection [Not Recovered/Not Resolved]
  - Renal failure acute [Unknown]
  - Respiratory failure [Unknown]
  - Diabetes mellitus [Unknown]
  - Skin ulcer [Not Recovered/Not Resolved]
  - Osteomyelitis chronic [Unknown]
  - Pulmonary oedema [Unknown]
  - Deep vein thrombosis [Unknown]
  - Impaired gastric emptying [Unknown]
  - Convulsion [Unknown]
  - Anaemia of chronic disease [Unknown]
  - Hypertension [Unknown]
  - Cytomegalovirus colitis [Unknown]
  - Anaemia [Unknown]
  - Gastrointestinal haemorrhage [Unknown]
  - Pancytopenia [Unknown]
  - Benign prostatic hyperplasia [Unknown]
  - Treatment noncompliance [Unknown]
  - Hyperlipidaemia [Unknown]
  - Oedema peripheral [Not Recovered/Not Resolved]
